FAERS Safety Report 7289099-5 (Version None)
Quarter: 2011Q1

REPORT INFORMATION
  Report Type: 
  Country: None (occurrence: None)
  Receive Date: 20110211
  Receipt Date: 20110202
  Transmission Date: 20110831
  Serious: Yes (Hospitalization)
  Sender: FDA-Public Use
  Company Number: US-ASTRAZENECA-2011SE05691

PATIENT
  Age: 92 Year
  Sex: Female
  Weight: 55.3 kg

DRUGS (1)
  1. ARIMIDEX [Suspect]
     Indication: BREAST CANCER
     Route: 048
     Dates: start: 20110101, end: 20110125

REACTIONS (3)
  - DEHYDRATION [None]
  - ATRIAL FIBRILLATION [None]
  - PAIN [None]
